FAERS Safety Report 9602433 (Version 1)
Quarter: 2013Q4

REPORT INFORMATION
  Report Type: Spontaneous
  Country: US (occurrence: US)
  Receive Date: 20131007
  Receipt Date: 20131007
  Transmission Date: 20140711
  Serious: Yes (Hospitalization)
  Sender: FDA-Public Use
  Company Number: US-JNJFOC-20130917281

PATIENT
  Age: 60 Year
  Sex: Male
  Weight: 89.81 kg

DRUGS (4)
  1. XARELTO [Suspect]
     Indication: CEREBROVASCULAR ACCIDENT PROPHYLAXIS
     Route: 048
     Dates: start: 201308
  2. XARELTO [Suspect]
     Indication: ATRIAL FIBRILLATION
     Route: 048
     Dates: start: 201308
  3. TIKOSYN [Concomitant]
     Indication: ATRIAL FIBRILLATION
     Route: 065
     Dates: start: 201309
  4. RESTASIS [Concomitant]
     Indication: DRY EYE
     Route: 065
     Dates: start: 2012

REACTIONS (3)
  - Atrial fibrillation [Unknown]
  - Headache [Recovering/Resolving]
  - Wrong technique in drug usage process [Unknown]
